FAERS Safety Report 6968333-2 (Version None)
Quarter: 2010Q3

REPORT INFORMATION
  Report Type: 
  Country: None (occurrence: None)
  Receive Date: 20100907
  Receipt Date: 20100901
  Transmission Date: 20110219
  Serious: Yes (Death, Hospitalization)
  Sender: FDA-Public Use
  Company Number: US-JNJFOC-20100809099

PATIENT
  Sex: Female
  Weight: 57.61 kg

DRUGS (6)
  1. FENTANYL-100 [Suspect]
     Indication: PAIN
     Route: 062
  2. FENTANYL-100 [Suspect]
     Route: 062
  3. FENTANYL-100 [Suspect]
     Route: 062
  4. FENTANYL-100 [Suspect]
     Route: 062
  5. FENTANYL-100 [Suspect]
     Route: 062
  6. FENTANYL-100 [Suspect]
     Route: 062

REACTIONS (6)
  - CARDIOVASCULAR DISORDER [None]
  - COMA [None]
  - DRUG EFFECT INCREASED [None]
  - HYPOTENSION [None]
  - PAIN [None]
  - SOMNOLENCE [None]
